FAERS Safety Report 23087073 (Version 2)
Quarter: 2023Q4

REPORT INFORMATION
  Report Type: Other
  Country: IN (occurrence: None)
  Receive Date: 20231020
  Receipt Date: 20231211
  Transmission Date: 20240110
  Serious: Yes (Hospitalization)
  Sender: FDA-Public Use
  Company Number: IN-ROCHE-3440589

PATIENT
  Age: 63 Year
  Sex: Male

DRUGS (1)
  1. TECENTRIQ [Suspect]
     Active Substance: ATEZOLIZUMAB
     Indication: Small cell lung cancer metastatic
     Route: 041
     Dates: start: 20230805

REACTIONS (2)
  - Viral infection [Unknown]
  - Pneumonia [Unknown]
